FAERS Safety Report 8445306-4 (Version None)
Quarter: 2012Q2

REPORT INFORMATION
  Report Type: 
  Country: None (occurrence: None)
  Receive Date: 20120323
  Receipt Date: 20111125
  Transmission Date: 20120825
  Serious: Yes (Hospitalization, Other)
  Sender: FDA-Public Use
  Company Number: 163-21880-11093811

PATIENT
  Age: 77 Year
  Sex: Male
  Weight: 78.4723 kg

DRUGS (5)
  1. FLOMAX [Concomitant]
  2. LENALIDOMIDE [Suspect]
     Indication: MULTIPLE MYELOMA
     Dosage: 25 MG, DAILY X 14 DAYS/OFF ONE WEEK, PO
     Route: 048
     Dates: start: 20110815
  3. ANTIBIOTIC (ANTIBIOTICS) [Concomitant]
  4. ULTRAM [Concomitant]
  5. MULTI-VITAMINS [Concomitant]

REACTIONS (5)
  - RENAL IMPAIRMENT [None]
  - PROSTATOMEGALY [None]
  - INTESTINAL OBSTRUCTION [None]
  - PLATELET COUNT DECREASED [None]
  - BACK PAIN [None]
